FAERS Safety Report 6108545-3 (Version None)
Quarter: 2009Q1

REPORT INFORMATION
  Report Type: 
  Country: None (occurrence: None)
  Receive Date: 20090309
  Receipt Date: 20090218
  Transmission Date: 20090719
  Serious: Yes (Other)
  Sender: FDA-Public Use
  Company Number: PHHY2009BR05845

PATIENT
  Age: 51 Year
  Sex: Female

DRUGS (9)
  1. DIOVAN AMLO FIX [Suspect]
     Indication: HYPERTENSION
     Dosage: 160/5 MG (1 DF/DAY)
     Route: 048
     Dates: start: 20081001, end: 20090208
  2. DIOVAN [Suspect]
     Indication: HYPERTENSION
     Dosage: 320 MG, UNK
     Route: 048
     Dates: start: 20080101
  3. PREXIGE [Suspect]
  4. GALVUS [Suspect]
  5. HYGROTON [Suspect]
     Indication: HYPERTENSION
     Dosage: 12.5 MG 42, UNK
     Dates: start: 20090209
  6. EUTHYROX [Concomitant]
     Indication: HYPOTHYROIDISM
     Dosage: 125 MCG (1DF/DAY)
     Route: 048
  7. TORAGESIC [Concomitant]
     Indication: PAIN
     Dosage: 1DF/DAY
     Route: 048
  8. PRESSAT [Concomitant]
     Indication: HYPERTENSION
     Dosage: 5 MG (1DF/DAY)
     Route: 048
     Dates: start: 20090218
  9. INDAPEN                                 /TUR/ [Concomitant]
     Indication: HYPERTENSION
     Dosage: 1 DF/DAY
     Route: 048
     Dates: start: 20090218

REACTIONS (9)
  - ABDOMINAL DISTENSION [None]
  - ABDOMINAL PAIN [None]
  - BLOOD ALKALINE PHOSPHATASE INCREASED [None]
  - BLOOD PRESSURE INADEQUATELY CONTROLLED [None]
  - EYELID OEDEMA [None]
  - GAMMA-GLUTAMYLTRANSFERASE INCREASED [None]
  - HEPATIC STEATOSIS [None]
  - OEDEMA PERIPHERAL [None]
  - PAIN [None]
